FAERS Safety Report 9227365 (Version 1)
Quarter: 2013Q2

REPORT INFORMATION
  Report Type: Spontaneous
  Country: CH (occurrence: CH)
  Receive Date: 20130412
  Receipt Date: 20130412
  Transmission Date: 20140414
  Serious: Yes (Other)
  Sender: FDA-Public Use
  Company Number: CH-BAYER-2013-045907

PATIENT
  Age: 28 Year
  Sex: Female

DRUGS (1)
  1. BETAFERON [Suspect]
     Dosage: UNK
     Dates: end: 201301

REACTIONS (1)
  - Abscess [Unknown]
